FAERS Safety Report 8933410 (Version 1)
Quarter: 2012Q4

REPORT INFORMATION
  Report Type: Report from Study
  Country: GB (occurrence: GB)
  Receive Date: 20121128
  Receipt Date: 20121128
  Transmission Date: 20130627
  Serious: Yes (Hospitalization)
  Sender: FDA-Public Use
  Company Number: GB-PFIZER INC-2012292077

PATIENT
  Age: 73 Year
  Sex: Male
  Weight: 63 kg

DRUGS (9)
  1. CALCIUM FOLINATE [Suspect]
     Indication: COLORECTAL CANCER
     Dosage: 360 mg, every 2 weeks
     Route: 042
     Dates: start: 20111129, end: 20111212
  2. IRINOTECAN HCL [Suspect]
     Indication: COLORECTAL CANCER
     Dosage: 297 mg, every 2 weeks
     Route: 042
     Dates: start: 20111129, end: 20111212
  3. FLUOROURACIL [Suspect]
     Indication: COLORECTAL CANCER
     Dosage: 2880 mg, every 2 weeks
     Route: 042
     Dates: start: 20111129, end: 20111212
  4. OXALIPLATIN [Suspect]
     Indication: COLORECTAL CANCER
     Dosage: 153 mg, every 2 weeks
     Route: 042
     Dates: start: 20111129, end: 20111212
  5. BEVACIZUMAB [Suspect]
     Indication: COLORECTAL CANCER
     Dosage: 330 mg, every 2 weeks
     Route: 042
     Dates: start: 20111129, end: 20111212
  6. FINASTERIDE [Concomitant]
     Indication: DRUG USE FOR UNKNOWN INDICATION
     Dosage: 5mg, UNK
     Dates: start: 20110912
  7. ATORVASTATIN [Concomitant]
     Indication: DRUG USE FOR UNKNOWN INDICATION
     Dosage: 40mg, UNK
     Dates: start: 20040521
  8. RAMIPRIL [Concomitant]
     Indication: DRUG USE FOR UNKNOWN INDICATION
     Dosage: 2.5mg, UNK
     Dates: start: 20080801
  9. ASPIRIN [Concomitant]
     Indication: DRUG USE FOR UNKNOWN INDICATION
     Dosage: 75mg, UNK
     Dates: start: 19990319

REACTIONS (1)
  - Lower respiratory tract infection [Recovered/Resolved]
